FAERS Safety Report 9613210 (Version 1)
Quarter: 2013Q4

REPORT INFORMATION
  Report Type: Spontaneous
  Country: CA (occurrence: CA)
  Receive Date: 20131010
  Receipt Date: 20131010
  Transmission Date: 20140711
  Serious: Yes (Other)
  Sender: FDA-Public Use
  Company Number: CA-ACTAVIS-2013-17891

PATIENT
  Age: 44 Year
  Sex: Male

DRUGS (2)
  1. CIPROFLOXACIN HYDROCHLORIDE [Suspect]
     Indication: PRODUCT USED FOR UNKNOWN INDICATION
     Dosage: 500 MG, UNK
     Dates: start: 20130413
  2. CIPROFLOXACIN HYDROCHLORIDE [Suspect]
     Dosage: 500 MG, BID
     Dates: start: 20130613, end: 20130717

REACTIONS (11)
  - Neuropathy peripheral [Unknown]
  - Arrhythmia [Unknown]
  - Pain [Unknown]
  - Paraesthesia [Unknown]
  - Arthralgia [Unknown]
  - Gait disturbance [Unknown]
  - Anxiety [Unknown]
  - Insomnia [Unknown]
  - Rash [Unknown]
  - Feeling cold [Unknown]
  - Feeling abnormal [Unknown]
